FAERS Safety Report 17739488 (Version 5)
Quarter: 2020Q4

REPORT INFORMATION
  Report Type: Spontaneous
  Country: CA (occurrence: CA)
  Receive Date: 20200504
  Receipt Date: 20201018
  Transmission Date: 20210113
  Serious: Yes (Other)
  Sender: FDA-Public Use
  Company Number: CA-CELLTRION INC.-2019CA028163

PATIENT

DRUGS (11)
  1. INFLECTRA [Suspect]
     Active Substance: INFLIXIMAB-DYYB
     Dosage: 400 MG, Q 0, 2,6 WEEKS THEN EVERY 8 WEEKS
     Route: 042
     Dates: start: 20200420
  2. PREDNISONE. [Concomitant]
     Active Substance: PREDNISONE
     Dosage: 40 MG, 1X/DAY
     Route: 048
     Dates: start: 20190129
  3. INFLECTRA [Suspect]
     Active Substance: INFLIXIMAB-DYYB
     Indication: CROHN^S DISEASE
     Dosage: 400 MG, Q 0, 2,6 WEEKS THEN EVERY 8 WEEKS
     Route: 042
     Dates: start: 20190220
  4. INFLECTRA [Suspect]
     Active Substance: INFLIXIMAB-DYYB
     Dosage: 400 MG, Q 0, 2,6 WEEKS THEN EVERY 8 WEEKS
     Route: 042
     Dates: start: 20200108
  5. INFLECTRA [Suspect]
     Active Substance: INFLIXIMAB-DYYB
     Dosage: 400 MG, Q 0, 2,6 WEEKS THEN EVERY 8 WEEKS
     Route: 042
     Dates: start: 20200815
  6. IMURAN [Concomitant]
     Active Substance: AZATHIOPRINE
     Dosage: 100 MG, 1X/DAY
     Route: 048
     Dates: start: 20190212
  7. INFLECTRA [Suspect]
     Active Substance: INFLIXIMAB-DYYB
     Dosage: 400 MG, Q 0, 2,6 WEEKS THEN EVERY 8 WEEKS
     Route: 042
     Dates: start: 20191113
  8. INFLECTRA [Suspect]
     Active Substance: INFLIXIMAB-DYYB
     Dosage: 400 MG, Q 0, 2,6 WEEKS THEN EVERY 8 WEEKS
     Route: 042
     Dates: start: 20200618
  9. INFLECTRA [Suspect]
     Active Substance: INFLIXIMAB-DYYB
     Dosage: 400 MG, Q 0, 2,6 WEEKS THEN EVERY 8 WEEKS
     Route: 042
     Dates: start: 20201009
  10. INFLECTRA [Suspect]
     Active Substance: INFLIXIMAB-DYYB
     Dosage: 400 MG, Q 0, 2,6 WEEKS THEN EVERY 8 WEEKS
     Route: 042
     Dates: start: 20200225
  11. MEZAVANT [Concomitant]
     Active Substance: MESALAMINE
     Dosage: 4.8 G, 1X/DAY
     Route: 048
     Dates: start: 201712

REACTIONS (5)
  - Intentional product use issue [Unknown]
  - Weight decreased [Unknown]
  - Blood pressure fluctuation [Unknown]
  - Off label use [Unknown]
  - Weight increased [Unknown]

NARRATIVE: CASE EVENT DATE: 201902
